FAERS Safety Report 21842865 (Version 22)
Quarter: 2025Q2

REPORT INFORMATION
  Report Type: Spontaneous
  Country: IN (occurrence: IN)
  Receive Date: 20230110
  Receipt Date: 20250630
  Transmission Date: 20250717
  Serious: Yes (Hospitalization, Other)
  Sender: PFIZER
  Company Number: IN-PFIZER INC-202101318331

PATIENT
  Age: 70 Year
  Sex: Female

DRUGS (21)
  1. PALBOCICLIB [Suspect]
     Active Substance: PALBOCICLIB
     Indication: Breast cancer metastatic
     Dosage: 125 MG, 1X/DAY
     Route: 048
  2. PALBOCICLIB [Suspect]
     Active Substance: PALBOCICLIB
     Dosage: 100 MG, 1X/DAY
     Route: 048
     Dates: start: 20210311
  3. PALBOCICLIB [Suspect]
     Active Substance: PALBOCICLIB
     Dosage: 125 MG, DAILY
     Route: 048
     Dates: start: 20210402
  4. PALBOCICLIB [Suspect]
     Active Substance: PALBOCICLIB
     Dosage: 100 MG, 1X/DAY
     Route: 048
     Dates: start: 202105
  5. PALBOCICLIB [Suspect]
     Active Substance: PALBOCICLIB
     Dosage: 125 MG, DAILY
     Route: 048
     Dates: end: 202207
  6. PALBOCICLIB [Suspect]
     Active Substance: PALBOCICLIB
     Dosage: 75/100 MG, ALTERNATE DAY
     Route: 048
     Dates: start: 20230106, end: 20230127
  7. PALBOCICLIB [Suspect]
     Active Substance: PALBOCICLIB
     Dosage: 75/100 MG, ALTERNATE DAY SINCE 2 MONTH
     Route: 048
     Dates: end: 20230225
  8. PALBOCICLIB [Suspect]
     Active Substance: PALBOCICLIB
     Route: 048
  9. PALBOCICLIB [Suspect]
     Active Substance: PALBOCICLIB
     Route: 048
     Dates: start: 20240130
  10. PALBOCICLIB [Suspect]
     Active Substance: PALBOCICLIB
     Route: 048
  11. PALBOCICLIB [Suspect]
     Active Substance: PALBOCICLIB
     Route: 048
  12. ANASTROZOLE [Suspect]
     Active Substance: ANASTROZOLE
     Indication: Breast cancer metastatic
     Dosage: 1 MG, 1X/DAY (1-0-0)
  13. ANASTROZOLE [Suspect]
     Active Substance: ANASTROZOLE
     Dates: start: 202103
  14. ANASTROZOLE [Suspect]
     Active Substance: ANASTROZOLE
     Dosage: 1 MG, 1X/DAY (1-0-0) X 2 MONTH
  15. CALCIUM CARBONATE\CHOLECALCIFEROL [Concomitant]
     Active Substance: CALCIUM CARBONATE\CHOLECALCIFEROL
  16. RICOSPRIN [Concomitant]
  17. SUPRACAL [CALCIUM CITRATE;COLECALCIFEROL;MAGNESIUM HYDROXIDE;ZINC SULF [Concomitant]
     Dosage: UNK, 1X/DAY (1-0-0 X 2 MONTH)
  18. CHOLECALCIFEROL [Concomitant]
     Active Substance: CHOLECALCIFEROL
     Dosage: 1 DF, MONTHLY
  19. DENOSUMAB [Concomitant]
     Active Substance: DENOSUMAB
     Route: 058
  20. MUCAINE [ALUMINIUM HYDROXIDE GEL;MAGNESIUM HYDROXIDE;OXETACAINE] [Concomitant]
     Dosage: 200 ML, 3X/DAY (2 TEASPOON, GEL SYP FOR 3 DAYS)
     Route: 048
  21. DENOSUMAB [Concomitant]
     Active Substance: DENOSUMAB
     Route: 058

REACTIONS (24)
  - Asthenia [Not Recovered/Not Resolved]
  - White blood cells urine positive [Unknown]
  - Blood potassium decreased [Unknown]
  - Haemoglobin decreased [Not Recovered/Not Resolved]
  - Anaemia [Unknown]
  - Melaena [Unknown]
  - Carbohydrate antigen 15-3 increased [Not Recovered/Not Resolved]
  - Fibrin D dimer increased [Unknown]
  - Constipation [Not Recovered/Not Resolved]
  - White blood cell count decreased [Not Recovered/Not Resolved]
  - Neutrophil count decreased [Not Recovered/Not Resolved]
  - Diarrhoea [Unknown]
  - Pyrexia [Unknown]
  - Cough [Unknown]
  - Arthritis [Unknown]
  - Oedema peripheral [Unknown]
  - Dyspnoea [Unknown]
  - Hypertension [Unknown]
  - Upper respiratory tract infection [Unknown]
  - Fatigue [Unknown]
  - Head discomfort [Unknown]
  - Nausea [Not Recovered/Not Resolved]
  - Alveolitis [Unknown]
  - Off label use [Unknown]

NARRATIVE: CASE EVENT DATE: 20220321
